FAERS Safety Report 11927146 (Version 1)
Quarter: 2016Q1

REPORT INFORMATION
  Report Type: Spontaneous
  Country: US (occurrence: US)
  Receive Date: 20160119
  Receipt Date: 20160119
  Transmission Date: 20160526
  Serious: Yes (Other)
  Sender: FDA-Public Use
  Company Number: US-CELGENEUS-USA-2016012176

PATIENT
  Age: 51 Year
  Sex: Male
  Weight: 92 kg

DRUGS (1)
  1. POMALYST [Suspect]
     Active Substance: POMALIDOMIDE
     Indication: PLASMA CELL MYELOMA
     Route: 048
     Dates: start: 20150505

REACTIONS (2)
  - Weight increased [Unknown]
  - Swelling [Unknown]

NARRATIVE: CASE EVENT DATE: 20151101
